FAERS Safety Report 4955028-X (Version None)
Quarter: 2006Q1

REPORT INFORMATION
  Report Type: 
  Country: None (occurrence: None)
  Receive Date: 20060322
  Receipt Date: 20060314
  Transmission Date: 20060701
  Serious: Yes (Other)
  Sender: FDA-Public Use
  Company Number: CHPA2006US02816

PATIENT
  Age: 52 Year
  Sex: Female

DRUGS (1)
  1. EXCEDRIN (MIGRAINE) [Suspect]
     Indication: MIGRAINE
     Dosage: 2 DF, Q6H,

REACTIONS (12)
  - BILIARY DYSKINESIA [None]
  - CHOLECYSTITIS [None]
  - CONDITION AGGRAVATED [None]
  - CONSTIPATION [None]
  - DYSPEPSIA [None]
  - EPIGASTRIC DISCOMFORT [None]
  - GASTRIC ULCER [None]
  - IRRITABLE BOWEL SYNDROME [None]
  - MIGRAINE [None]
  - NUCLEAR MAGNETIC RESONANCE IMAGING BRAIN ABNORMAL [None]
  - OVERDOSE [None]
  - REFLUX OESOPHAGITIS [None]
